FAERS Safety Report 8889832 (Version 1)
Quarter: 2012Q4

REPORT INFORMATION
  Report Type: 
  Country: US (occurrence: US)
  Receive Date: 20121107
  Receipt Date: 20121107
  Transmission Date: 20130627
  Serious: Yes (Other)
  Sender: FDA-Public Use
  Company Number: US-ELI_LILLY_AND_COMPANY-US201108008865

PATIENT
  Sex: Male

DRUGS (2)
  1. HUMATROPE [Suspect]
     Indication: DWARFISM
     Dosage: 2.8 mg, qd
     Dates: start: 201107
  2. HUMATROPE [Suspect]
     Dosage: 3.2 mg, qd
     Dates: start: 201108

REACTIONS (3)
  - Ligament injury [Unknown]
  - Paraesthesia [Unknown]
  - Back pain [Unknown]
